FAERS Safety Report 18854371 (Version 1)
Quarter: 2021Q1

REPORT INFORMATION
  Report Type: Spontaneous
  Country: JP (occurrence: JP)
  Receive Date: 20210205
  Receipt Date: 20210205
  Transmission Date: 20210420
  Serious: Yes (Life-Threatening, Hospitalization, Other)
  Sender: FDA-Public Use
  Company Number: JP-SA-2021SA035683

PATIENT
  Age: 71 Year
  Sex: Female

DRUGS (1)
  1. GLIMEPIRIDE. [Suspect]
     Active Substance: GLIMEPIRIDE
     Indication: TYPE 2 DIABETES MELLITUS
     Dosage: UNK

REACTIONS (7)
  - Cerebral infarction [Recovering/Resolving]
  - Hypoglycaemic encephalopathy [Recovering/Resolving]
  - Stress cardiomyopathy [Recovering/Resolving]
  - Hypoglycaemia [Recovering/Resolving]
  - Cerebral artery occlusion [Recovered/Resolved]
  - Cerebral artery embolism [Recovering/Resolving]
  - Electrocardiogram ST segment elevation [Recovering/Resolving]
